FAERS Safety Report 17185098 (Version 1)
Quarter: 2019Q4

REPORT INFORMATION
  Report Type: Spontaneous
  Country: US (occurrence: US)
  Receive Date: 20191129
  Receipt Date: 20191129
  Transmission Date: 20200122
  Serious: Yes (Hospitalization)
  Sender: FDA-Public Use
  Company Number: None

PATIENT
  Age: 74 Year
  Sex: Female
  Weight: 105.3 kg

DRUGS (2)
  1. FASLODEX [Suspect]
     Active Substance: FULVESTRANT
     Dates: end: 20191112
  2. PALBOCICLIB (PD-0332991) [Suspect]
     Active Substance: PALBOCICLIB
     Dates: end: 20191119

REACTIONS (5)
  - Pneumothorax [None]
  - Pleural effusion [None]
  - Nausea [None]
  - Ascites [None]
  - Abdominal discomfort [None]

NARRATIVE: CASE EVENT DATE: 20191119
